FAERS Safety Report 5283822-7 (Version None)
Quarter: 2007Q2

REPORT INFORMATION
  Report Type: 
  Country: None (occurrence: None)
  Receive Date: 20070402
  Receipt Date: 20070327
  Transmission Date: 20071010
  Serious: Yes (Hospitalization)
  Sender: FDA-Public Use
  Company Number: DE-SHR-DE-2007-009869

PATIENT
  Age: 45 Year
  Sex: Female
  Weight: 67 kg

DRUGS (3)
  1. MIRENA [Suspect]
     Indication: CONTRACEPTION
     Dosage: 20 A?G/DAY, CONT
     Route: 015
     Dates: start: 20061107
  2. ZOLADEX [Concomitant]
  3. TAMOXIFEN CITRATE [Concomitant]

REACTIONS (1)
  - BREAST CANCER [None]
